FAERS Safety Report 11114422 (Version 2)
Quarter: 2015Q2

REPORT INFORMATION
  Report Type: Spontaneous
  Country: BR (occurrence: BR)
  Receive Date: 20150515
  Receipt Date: 20150526
  Transmission Date: 20150821
  Serious: Yes (Other)
  Sender: FDA-Public Use
  Company Number: PHHY2015BR056975

PATIENT
  Age: 11 Year
  Sex: Male
  Weight: 48 kg

DRUGS (3)
  1. RITALIN LA [Suspect]
     Active Substance: METHYLPHENIDATE HYDROCHLORIDE
     Indication: PSYCHOMOTOR HYPERACTIVITY
     Dosage: 2 DF OF 10 MG, QD
     Route: 048
  2. RITALIN LA [Suspect]
     Active Substance: METHYLPHENIDATE HYDROCHLORIDE
     Indication: AGGRESSION
     Dosage: 1 DF OF 20 MG, QD
     Route: 048
     Dates: start: 20150418, end: 20150428
  3. RETEMIC [Concomitant]
     Active Substance: OXYBUTYNIN
     Indication: URINARY INCONTINENCE
     Dosage: 2 DF, QD
     Route: 048

REACTIONS (15)
  - Viral infection [Unknown]
  - Vomiting [Recovered/Resolved]
  - Hypersomnia [Unknown]
  - Pyrexia [Recovered/Resolved]
  - Cold sweat [Recovered/Resolved]
  - Influenza [Recovered/Resolved]
  - Pruritus [Recovering/Resolving]
  - Hyperhidrosis [Recovered/Resolved]
  - Eating disorder [Recovered/Resolved]
  - Yellow skin [Recovered/Resolved]
  - Chest pain [Recovered/Resolved]
  - Daydreaming [Unknown]
  - Off label use [Unknown]
  - Somnolence [Recovering/Resolving]
  - Seizure [Recovered/Resolved]

NARRATIVE: CASE EVENT DATE: 20150503
